FAERS Safety Report 11708201 (Version 1)
Quarter: 2015Q4

REPORT INFORMATION
  Report Type: Spontaneous
  Country: US (occurrence: US)
  Receive Date: 20151104
  Receipt Date: 20151104
  Transmission Date: 20160304
  Serious: No
  Sender: FDA-Public Use
  Company Number: US-ELI_LILLY_AND_COMPANY-US201105006412

PATIENT
  Sex: Female

DRUGS (3)
  1. FORTEO [Suspect]
     Active Substance: TERIPARATIDE
     Dosage: 20 UG, QD
  2. FORTEO [Suspect]
     Active Substance: TERIPARATIDE
     Dosage: 20 UG, QD
     Dates: end: 20110513
  3. FORTEO [Suspect]
     Active Substance: TERIPARATIDE
     Indication: OSTEOPOROSIS
     Dosage: 20 UG, QD
     Dates: start: 20110419, end: 20110508

REACTIONS (9)
  - Muscle spasms [Not Recovered/Not Resolved]
  - Muscle tightness [Unknown]
  - Fibromyalgia [Unknown]
  - Mass [Unknown]
  - Pain [Unknown]
  - Hypokinesia [Unknown]
  - Limb discomfort [Unknown]
  - Pain in jaw [Unknown]
  - Gait disturbance [Unknown]
